FAERS Safety Report 17500094 (Version 2)
Quarter: 2020Q1

REPORT INFORMATION
  Report Type: Report from Study
  Country: US (occurrence: US)
  Receive Date: 20200305
  Receipt Date: 20200305
  Transmission Date: 20200409
  Serious: Yes (Other)
  Sender: FDA-Public Use
  Company Number: US-EMD SERONO-9149246

PATIENT
  Sex: Male

DRUGS (1)
  1. SEROSTIM [Suspect]
     Active Substance: SOMATROPIN
     Indication: CACHEXIA
     Dosage: MULTI DOSE 7-VIAL PACK
     Route: 058
     Dates: start: 20171116

REACTIONS (2)
  - Actinic keratosis [Unknown]
  - Neoplasm malignant [Unknown]
